FAERS Safety Report 7525990-X (Version None)
Quarter: 2011Q2

REPORT INFORMATION
  Report Type: 
  Country: None (occurrence: None)
  Receive Date: 20110606
  Receipt Date: 20100116
  Transmission Date: 20111010
  Serious: Yes (Death, Hospitalization, Other)
  Sender: FDA-Public Use
  Company Number: US-BAYER-201011194NA

PATIENT
  Age: 72 Year
  Sex: Female
  Weight: 67 kg

DRUGS (20)
  1. ZOCOR [Concomitant]
     Dosage: 40 MG, HS
     Route: 048
     Dates: start: 19950101, end: 20050414
  2. TRASYLOL [Suspect]
     Indication: ANEURYSM REPAIR
     Dosage: 1,000,000 KALLIKREIN INHIBITOR UNITS FOLLOWED BY INFUSION OF 50 CC/HR
     Route: 042
     Dates: start: 20050415, end: 20050415
  3. TRASYLOL [Suspect]
     Dosage: UNK
     Route: 042
     Dates: start: 19950222
  4. PLATELETS [Concomitant]
     Dosage: 6 PACKS ONCE
     Route: 042
     Dates: start: 20050415
  5. HEPARIN [Concomitant]
     Dosage: UNK
     Route: 042
     Dates: start: 19950222
  6. TRASYLOL [Suspect]
     Indication: CORONARY ARTERY BYPASS
     Dosage: 1 ML INITIAL TEST DOSE
     Route: 042
     Dates: start: 20050415, end: 20050415
  7. PLASMA [Concomitant]
     Dosage: 2 U, ONCE
     Route: 042
     Dates: start: 20050415
  8. FENTANYL [Concomitant]
     Dosage: 150 MICROGRAM
     Route: 042
     Dates: start: 20050414
  9. ALTACE [Concomitant]
     Dosage: UNK
     Dates: start: 20050101, end: 20050413
  10. WHOLE BLOOD [Concomitant]
     Dosage: 8 U, ONCE
     Route: 042
     Dates: start: 20050415
  11. ANCEF [Concomitant]
     Dosage: 2 GRAMS
     Route: 042
     Dates: start: 20050414
  12. ACETYLSALICYLIC ACID SRT [Concomitant]
     Dosage: 81 MG, QD
     Route: 048
     Dates: start: 19890101, end: 20050416
  13. LOPRESSOR [Concomitant]
     Dosage: 100 MG, BID
     Route: 048
     Dates: start: 19950101, end: 20050415
  14. NORVASC [Concomitant]
     Dosage: 10 MG, QD
     Route: 048
     Dates: start: 19990101, end: 20050421
  15. IMDUR [Concomitant]
     Dosage: 60 MG, QD
     Route: 048
     Dates: start: 20010101, end: 20050414
  16. RED BLOOD CELLS [Concomitant]
     Dosage: 3 U, ONCE
     Route: 042
     Dates: start: 20050415
  17. DILANTIN [Concomitant]
     Dosage: 100 MG, HS
     Route: 048
     Dates: start: 20010101, end: 20050414
  18. DIPRIVAN [Concomitant]
     Dosage: 60 MG FOLLOWED BY DRIP OF 30 MICROGRAMS/KG/MIN.
     Route: 042
     Dates: start: 20050414
  19. VERSED [Concomitant]
     Dosage: 3 MG
     Route: 042
     Dates: start: 20050414
  20. NIMBEX [Concomitant]
     Dosage: 10 MG
     Route: 042
     Dates: start: 20050414

REACTIONS (14)
  - ANHEDONIA [None]
  - RENAL INJURY [None]
  - DEATH [None]
  - CEREBROVASCULAR ACCIDENT [None]
  - CARDIAC DISORDER [None]
  - ORGAN FAILURE [None]
  - FEAR [None]
  - DEPRESSION [None]
  - INJURY [None]
  - PAIN [None]
  - ANXIETY [None]
  - UNEVALUABLE EVENT [None]
  - RENAL FAILURE [None]
  - RENAL IMPAIRMENT [None]
